FAERS Safety Report 4630969-1 (Version None)
Quarter: 2005Q2

REPORT INFORMATION
  Report Type: 
  Country: None (occurrence: None)
  Receive Date: 20050406
  Receipt Date: 20050406
  Transmission Date: 20051028
  Serious: No
  Sender: FDA-Public Use
  Company Number: None

PATIENT
  Age: 78 Year
  Sex: Female
  Weight: 73.9363 kg

DRUGS (4)
  1. CITALOPRAM HBR 20MG [Suspect]
     Indication: DEPRESSION
     Dosage: 1 BY MOUTH DAILY
     Dates: start: 20050324
  2. . [Concomitant]
  3. CALCIUM GLUCONATE [Concomitant]
  4. VITAMIN E [Concomitant]

REACTIONS (3)
  - DIZZINESS [None]
  - HEADACHE [None]
  - INSOMNIA [None]
